FAERS Safety Report 10269750 (Version 1)
Quarter: 2014Q2

REPORT INFORMATION
  Report Type: Spontaneous
  Country: US (occurrence: None)
  Receive Date: 20140626
  Receipt Date: 20140626
  Transmission Date: 20141212
  Serious: Yes (Other)
  Sender: FDA-Public Use
  Company Number: None

PATIENT
  Age: 48 Year
  Sex: Female
  Weight: 54.43 kg

DRUGS (6)
  1. LYRICA [Suspect]
     Indication: NEURALGIA
     Dosage: 1 PILL, (7 DAYS) 2 PILLS (7 DAYS) 3 PILLS (7 DAYS), 1X2 TIMES A DAY, 2X2 TIMES, 2X3 TIMES A DAY (7 DAYS)
     Route: 048
     Dates: start: 20140606, end: 20140613
  2. LIDOCAINE PATCH 5% (DR. REDDY^S LABORATORIES) (LIDOCAINE) [Concomitant]
  3. VITAMIN D [Concomitant]
  4. CALCIUM-MAGNESIUM-ZINC [Concomitant]
  5. IRON [Concomitant]
  6. ICY HOT CREAM [Concomitant]

REACTIONS (4)
  - Pain in extremity [None]
  - Arthralgia [None]
  - Pain [None]
  - Somnolence [None]
